FAERS Safety Report 5525025-4 (Version None)
Quarter: 2007Q4

REPORT INFORMATION
  Report Type: 
  Country: None (occurrence: None)
  Receive Date: 20071119
  Receipt Date: 20071106
  Transmission Date: 20080405
  Serious: Yes (Hospitalization)
  Sender: FDA-Public Use
  Company Number: 2007BI020839

PATIENT
  Age: 59 Year
  Sex: Female

DRUGS (1)
  1. NATALIZUMAB [Suspect]
     Indication: MULTIPLE SCLEROSIS
     Dosage: 300 MG;QM;IV
     Route: 042
     Dates: start: 20070618

REACTIONS (10)
  - ARTHRALGIA [None]
  - BALANCE DISORDER [None]
  - DYSPHEMIA [None]
  - FATIGUE [None]
  - MUSCULOSKELETAL STIFFNESS [None]
  - PARAESTHESIA [None]
  - PROCEDURAL PAIN [None]
  - PRURITUS [None]
  - URINARY TRACT INFECTION [None]
  - VAGINAL PROLAPSE [None]
